FAERS Safety Report 18985545 (Version 1)
Quarter: 2021Q1

REPORT INFORMATION
  Report Type: Report from Study
  Country: US (occurrence: US)
  Receive Date: 20210309
  Receipt Date: 20210309
  Transmission Date: 20210420
  Serious: No
  Sender: FDA-Public Use
  Company Number: NVSC2021US053379

PATIENT
  Sex: Female

DRUGS (1)
  1. ENTRESTO [Suspect]
     Active Substance: SACUBITRIL\VALSARTAN
     Indication: DYSPNOEA
     Dosage: 50 MG, BID
     Route: 048
     Dates: start: 202101

REACTIONS (3)
  - Hypoacusis [Unknown]
  - Ocular discomfort [Unknown]
  - Product use in unapproved indication [Unknown]
